FAERS Safety Report 12281548 (Version 1)
Quarter: 2016Q2

REPORT INFORMATION
  Report Type: Spontaneous
  Country: US (occurrence: US)
  Receive Date: 20160419
  Receipt Date: 20160419
  Transmission Date: 20160815
  Serious: Yes (Congenital Anomaly, Other)
  Sender: FDA-Public Use
  Company Number: US-APOTEX-2014AP003544

PATIENT
  Age: 0 Day
  Sex: Female

DRUGS (2)
  1. PAXIL [Suspect]
     Active Substance: PAROXETINE HYDROCHLORIDE
     Indication: POSTPARTUM DEPRESSION
  2. PAXIL [Suspect]
     Active Substance: PAROXETINE HYDROCHLORIDE
     Indication: DEPRESSION
     Route: 064

REACTIONS (15)
  - Craniosynostosis [Unknown]
  - Astigmatism [Unknown]
  - Hydrocephalus [Unknown]
  - Gastric fistula [Unknown]
  - Neurogenic bladder [Unknown]
  - Syringomyelia [Unknown]
  - Auditory neuropathy spectrum disorder [Unknown]
  - Spina bifida [Unknown]
  - Meningomyelocele [Unknown]
  - Plagiocephaly [Unknown]
  - Foetal exposure during pregnancy [Unknown]
  - Scoliosis [Unknown]
  - Arnold-Chiari malformation [Unknown]
  - Muscular weakness [Unknown]
  - Hypermetropia [Unknown]

NARRATIVE: CASE EVENT DATE: 20030805
